FAERS Safety Report 8510438-9 (Version None)
Quarter: 2012Q3

REPORT INFORMATION
  Report Type: 
  Country: None (occurrence: None)
  Receive Date: 20120714
  Receipt Date: 20120709
  Transmission Date: 20120928
  Serious: No
  Sender: FDA-Public Use
  Company Number: US-009507513-1207USA002492

PATIENT

DRUGS (5)
  1. VITAMINS (UNSPECIFIED) [Concomitant]
  2. REBETOL [Suspect]
     Dosage: UNK, UNKNOWN
  3. UNISOM (DIPHENHYDRAMINE HYDROCHLORIDE) [Concomitant]
  4. PEG-INTRON [Suspect]
     Indication: HEPATITIS C
     Dosage: 96 MICROGRAM, QW
     Route: 058
     Dates: start: 20120401
  5. ALLEGRA [Concomitant]

REACTIONS (4)
  - INJECTION SITE RASH [None]
  - FATIGUE [None]
  - DYSPEPSIA [None]
  - HAEMOGLOBIN DECREASED [None]
